FAERS Safety Report 9899895 (Version 3)
Quarter: 2016Q2

REPORT INFORMATION
  Report Type: Report from Study
  Country: TH (occurrence: TH)
  Receive Date: 20140214
  Receipt Date: 20160502
  Transmission Date: 20160815
  Serious: Yes (Death, Hospitalization, Other)
  Sender: FDA-Public Use
  Company Number: TH-BRISTOL-MYERS SQUIBB COMPANY-19888817

PATIENT
  Age: 34 Year
  Sex: Female
  Weight: 38.25 kg

DRUGS (6)
  1. SODIUM PHOSPHATE [Concomitant]
     Active Substance: SODIUM PHOSPHATE
     Indication: PRODUCT USED FOR UNKNOWN INDICATION
     Dosage: SOLN
     Route: 065
  2. EFAVIRENZ [Suspect]
     Active Substance: EFAVIRENZ
     Indication: HIV INFECTION
     Dosage: LAST DOSE:21NOV13
     Route: 048
     Dates: start: 20120111, end: 20140115
  3. FOLIC ACID. [Concomitant]
     Active Substance: FOLIC ACID
     Indication: PRODUCT USED FOR UNKNOWN INDICATION
     Route: 065
  4. ALFACALCIDOL [Concomitant]
     Active Substance: ALFACALCIDOL
     Indication: PRODUCT USED FOR UNKNOWN INDICATION
     Route: 065
  5. LAMIVUDINE. [Suspect]
     Active Substance: LAMIVUDINE
     Indication: HIV INFECTION
     Dosage: TABS,18JUL05-01JUL09,28MAR11-12SEP11  LAST DOSE ON 21NOV2013
     Route: 048
     Dates: start: 20120111, end: 20140115
  6. DIDANOSINE. [Suspect]
     Active Substance: DIDANOSINE
     Indication: HIV INFECTION
     Dosage: LAST DOSE:21NOV13
     Route: 048
     Dates: start: 20120111, end: 20140115

REACTIONS (2)
  - Disease progression [Fatal]
  - Systemic lupus erythematosus [Fatal]

NARRATIVE: CASE EVENT DATE: 20131121
